FAERS Safety Report 7192695-7 (Version None)
Quarter: 2010Q4

REPORT INFORMATION
  Report Type: 
  Country: None (occurrence: None)
  Receive Date: 20101221
  Receipt Date: 20101221
  Transmission Date: 20110411
  Serious: No
  Sender: FDA-Public Use
  Company Number: None

PATIENT
  Age: 70 Year
  Sex: Male
  Weight: 113.3993 kg

DRUGS (2)
  1. LEVAQUIN [Suspect]
     Indication: BRONCHITIS
     Dosage: 1 TAB DAILY PO
     Route: 048
     Dates: start: 20100206, end: 20100214
  2. LEVAQUIN [Suspect]
     Indication: PNEUMONIA
     Dosage: 1 TAB DAILY PO
     Route: 048
     Dates: start: 20100824, end: 20100903

REACTIONS (1)
  - TENDONITIS [None]
